FAERS Safety Report 10421069 (Version 1)
Quarter: 2014Q3

REPORT INFORMATION
  Report Type: Spontaneous
  Country: US (occurrence: None)
  Receive Date: 20140722
  Receipt Date: 20140722
  Transmission Date: 20150326
  Serious: No
  Sender: FDA-Public Use
  Company Number: 163-10004-14051822

PATIENT
  Age: 53 Year
  Sex: Male
  Weight: 71.67 kg

DRUGS (5)
  1. OTEZLA [Suspect]
     Active Substance: APREMILAST
     Indication: PSORIATIC ARTHROPATHY
     Route: 048
     Dates: start: 20140504
  2. LEVAQUIN [Concomitant]
     Active Substance: LEVOFLOXACIN
  3. SPIRIVA [Concomitant]
     Active Substance: TIOTROPIUM BROMIDE MONOHYDRATE
  4. PREVACID [Concomitant]
     Active Substance: LANSOPRAZOLE
  5. SYMBICORT (SYMBICORT TORBUIHALER ^DRACO^) [Concomitant]

REACTIONS (8)
  - Night sweats [None]
  - Pharyngitis streptococcal [None]
  - Muscle spasms [None]
  - Abdominal discomfort [None]
  - Cough [None]
  - Diarrhoea [None]
  - Nausea [None]
  - Pyrexia [None]

NARRATIVE: CASE EVENT DATE: 201405
